FAERS Safety Report 5035151-4 (Version None)
Quarter: 2006Q2

REPORT INFORMATION
  Report Type: 
  Country: None (occurrence: None)
  Receive Date: 20060622
  Receipt Date: 20060615
  Transmission Date: 20061013
  Serious: Yes (Hospitalization)
  Sender: FDA-Public Use
  Company Number: STA-AE-06-045

PATIENT
  Age: 74 Year
  Sex: Female
  Weight: 59.2 kg

DRUGS (4)
  1. FUROSEMIDE [Suspect]
  2. POTASSIUM [Concomitant]
  3. CAPTOPRIL [Concomitant]
  4. THYROXINE [Concomitant]

REACTIONS (15)
  - ABDOMINAL PAIN [None]
  - ASCITES [None]
  - CARDIOMEGALY [None]
  - DEHYDRATION [None]
  - DYSPNOEA EXACERBATED [None]
  - EJECTION FRACTION DECREASED [None]
  - FALL [None]
  - FATIGUE [None]
  - HYPOREFLEXIA [None]
  - LETHARGY [None]
  - ORTHOSTATIC HYPOTENSION [None]
  - PERIPHERAL SENSORY NEUROPATHY [None]
  - PULMONARY OEDEMA [None]
  - RALES [None]
  - VENOUS PRESSURE JUGULAR INCREASED [None]
